FAERS Safety Report 7687078-7 (Version None)
Quarter: 2011Q3

REPORT INFORMATION
  Report Type: 
  Country: None (occurrence: None)
  Receive Date: 20110816
  Receipt Date: 20110809
  Transmission Date: 20111222
  Serious: Yes (Hospitalization)
  Sender: FDA-Public Use
  Company Number: US-ABBOTT-11P-163-0844937-00

PATIENT
  Sex: Male
  Weight: 118.04 kg

DRUGS (6)
  1. LIPITOR [Concomitant]
     Indication: PRODUCT USED FOR UNKNOWN INDICATION
  2. ANDROGEL [Suspect]
     Indication: BLOOD TESTOSTERONE DECREASED
  3. UNKNOWN BLOOD PRESSURE MEDICATION [Concomitant]
     Indication: BLOOD PRESSURE
  4. NEXIUM [Concomitant]
     Indication: GASTRIC DISORDER
  5. INSULIN [Concomitant]
     Indication: DIABETES MELLITUS
  6. LISINOPRIL [Concomitant]
     Indication: PRODUCT USED FOR UNKNOWN INDICATION

REACTIONS (4)
  - BURNING SENSATION [None]
  - APPLICATION SITE RASH [None]
  - ANKLE FRACTURE [None]
  - APPLICATION SITE PRURITUS [None]
